FAERS Safety Report 7054557-5 (Version None)
Quarter: 2010Q4

REPORT INFORMATION
  Report Type: 
  Country: None (occurrence: None)
  Receive Date: 20101020
  Receipt Date: 20101007
  Transmission Date: 20110411
  Serious: Yes (Hospitalization)
  Sender: FDA-Public Use
  Company Number: US-ELI_LILLY_AND_COMPANY-US201010002334

PATIENT
  Sex: Female

DRUGS (3)
  1. ZYPREXA RELPREVV [Suspect]
     Indication: SCHIZOPHRENIA
     Dosage: 300 MG, UNKNOWN
     Dates: start: 20100701
  2. SEROQUEL [Concomitant]
  3. HALDOL [Concomitant]

REACTIONS (1)
  - UNRESPONSIVE TO STIMULI [None]
